FAERS Safety Report 8946139 (Version 1)
Quarter: 2012Q4

REPORT INFORMATION
  Report Type: 
  Country: US (occurrence: US)
  Receive Date: 20121204
  Receipt Date: 20121204
  Transmission Date: 20130627
  Serious: No
  Sender: FDA-Public Use
  Company Number: US-AMGEN-USASP2012060585

PATIENT
  Age: 41 Year
  Sex: Female
  Weight: 95.69 kg

DRUGS (1)
  1. ENBREL [Suspect]
     Indication: PSORIATIC ARTHROPATHY
     Dosage: 50 mg, qwk
     Route: 058
     Dates: start: 20110705

REACTIONS (4)
  - Meniscus operation [Recovered/Resolved]
  - Ligament operation [Recovered/Resolved]
  - Infection [Not Recovered/Not Resolved]
  - Post procedural infection [Unknown]
